FAERS Safety Report 10740933 (Version 1)
Quarter: 2015Q1

REPORT INFORMATION
  Report Type: Spontaneous
  Country: FR (occurrence: FR)
  Receive Date: 20150127
  Receipt Date: 20150127
  Transmission Date: 20150721
  Serious: Yes (Hospitalization)
  Sender: FDA-Public Use
  Company Number: FR-SA-2015SA008342

PATIENT
  Age: 89 Year
  Sex: Female

DRUGS (8)
  1. DOLIPRANE [Suspect]
     Active Substance: ACETAMINOPHEN
     Route: 048
  2. LOVENOX [Suspect]
     Active Substance: ENOXAPARIN SODIUM
     Route: 058
  3. PREVISCAN [Suspect]
     Active Substance: FLUINDIONE
     Route: 048
  4. LASILIX [Suspect]
     Active Substance: FUROSEMIDE
     Route: 058
     Dates: end: 20141223
  5. SPASFON [Suspect]
     Active Substance: PHLOROGLUCINOL
     Route: 048
  6. BISOPROLOL FUMARATE. [Suspect]
     Active Substance: BISOPROLOL FUMARATE
     Route: 048
     Dates: end: 20141221
  7. BISOPROLOL FUMARATE. [Suspect]
     Active Substance: BISOPROLOL FUMARATE
     Route: 048
     Dates: start: 20141228, end: 20141229
  8. ALDACTONE [Suspect]
     Active Substance: SPIRONOLACTONE
     Route: 048

REACTIONS (1)
  - Hypoglycaemia [Not Recovered/Not Resolved]

NARRATIVE: CASE EVENT DATE: 201412
